FAERS Safety Report 12893590 (Version 1)
Quarter: 2016Q4

REPORT INFORMATION
  Report Type: Spontaneous
  Country: US (occurrence: US)
  Receive Date: 20161027
  Receipt Date: 20161027
  Transmission Date: 20170207
  Serious: No
  Sender: FDA-Public Use
  Company Number: None

PATIENT
  Age: 61 Year
  Sex: Female
  Weight: 78.75 kg

DRUGS (2)
  1. ZANTAC [Concomitant]
     Active Substance: RANITIDINE HYDROCHLORIDE
  2. PROPOFOL. [Suspect]
     Active Substance: PROPOFOL
     Indication: SEDATIVE THERAPY
     Dosage: INTRAVENOUS (NOT OTHERWISE SPECIFIED)
     Route: 042
     Dates: start: 20161024, end: 20161024

REACTIONS (9)
  - Fatigue [None]
  - Neck pain [None]
  - Feeling abnormal [None]
  - Body temperature increased [None]
  - Chills [None]
  - Arthralgia [None]
  - Pain in extremity [None]
  - Productive cough [None]
  - Wheezing [None]

NARRATIVE: CASE EVENT DATE: 20161024
